FAERS Safety Report 8795718 (Version 1)
Quarter: 2012Q4

REPORT INFORMATION
  Report Type: 
  Country: US (occurrence: US)
  Receive Date: 20120919
  Receipt Date: 20120919
  Transmission Date: 20130627
  Serious: Yes (Other)
  Sender: FDA-Public Use
  Company Number: US-BAYER-2012-094306

PATIENT
  Age: 47 Year
  Sex: Female

DRUGS (1)
  1. MIRENA [Suspect]
     Dosage: Daily dose 20 ?g
     Route: 015
     Dates: start: 2011, end: 2012

REACTIONS (4)
  - Genital haemorrhage [None]
  - Medical device discomfort [None]
  - Device expulsion [None]
  - Device expulsion [None]
